FAERS Safety Report 5361311-9 (Version None)
Quarter: 2007Q2

REPORT INFORMATION
  Report Type: 
  Country: None (occurrence: None)
  Receive Date: 20070618
  Receipt Date: 20060602
  Transmission Date: 20071010
  Serious: Yes (Hospitalization, Disabling)
  Sender: FDA-Public Use
  Company Number: FR-GENENTECH-223786

PATIENT
  Sex: Male
  Weight: 81 kg

DRUGS (4)
  1. MABTHERA [Suspect]
     Indication: CHRONIC LYMPHOCYTIC LEUKAEMIA
     Dosage: 375 MG/M2, 1/MONTH
     Route: 042
     Dates: start: 20041129, end: 20060209
  2. MABTHERA [Suspect]
     Dosage: UNK, Q2M
     Dates: start: 20050613, end: 20060413
  3. CYCLOPHOSPHAMIDE [Concomitant]
     Indication: CHRONIC LYMPHOCYTIC LEUKAEMIA
     Dosage: UNK, 1/MONTH
     Dates: start: 20041129
  4. FLUDARABINE PHOSPHATE [Concomitant]
     Indication: CHRONIC LYMPHOCYTIC LEUKAEMIA
     Dosage: UNK, 1/MONTH
     Dates: start: 20041129

REACTIONS (3)
  - EXTREMITY NECROSIS [None]
  - MOUTH ULCERATION [None]
  - RASH [None]
